FAERS Safety Report 19810835 (Version 1)
Quarter: 2021Q3

REPORT INFORMATION
  Report Type: Spontaneous
  Country: GB (occurrence: GB)
  Receive Date: 20210909
  Receipt Date: 20210909
  Transmission Date: 20211014
  Serious: Yes (Death)
  Sender: FDA-Public Use
  Company Number: GB-ALNYLAM PHARMACEUTICALS, INC.-ALN-2021-002201

PATIENT

DRUGS (1)
  1. ONPATTRO [Suspect]
     Active Substance: PATISIRAN SODIUM
     Indication: AMYLOIDOSIS
     Dosage: 19 MILLIGRAM, Q3W
     Route: 042
     Dates: start: 2020

REACTIONS (1)
  - Food refusal [Fatal]
